FAERS Safety Report 4851894-7 (Version None)
Quarter: 2005Q4

REPORT INFORMATION
  Report Type: 
  Country: None (occurrence: None)
  Receive Date: 20051213
  Receipt Date: 20051205
  Transmission Date: 20060501
  Serious: Yes (Other)
  Sender: FDA-Public Use
  Company Number: JP-AVENTIS-200513707JP

PATIENT
  Age: 54 Year
  Sex: Female

DRUGS (5)
  1. ARAVA [Suspect]
     Indication: RHEUMATOID ARTHRITIS
     Route: 048
     Dates: start: 20050121, end: 20050203
  2. PREDONINE [Concomitant]
     Indication: RHEUMATOID ARTHRITIS
     Dosage: DOSE: 1 TABLET
     Route: 048
  3. TAGAMET [Concomitant]
     Indication: GASTRITIS
     Dosage: DOSE: 1 TABLET
     Route: 048
  4. URSO [Concomitant]
     Indication: HEPATIC STEATOSIS
     Dosage: DOSE: 6 TABLETS
     Route: 048
  5. RHEUMATREX [Concomitant]
     Indication: RHEUMATOID ARTHRITIS
     Dosage: DOSE: 6 MG/WEEK
     Dates: start: 20030726, end: 20041118

REACTIONS (4)
  - ALANINE AMINOTRANSFERASE INCREASED [None]
  - ASPARTATE AMINOTRANSFERASE INCREASED [None]
  - FATIGUE [None]
  - HEPATIC FUNCTION ABNORMAL [None]
